FAERS Safety Report 25162604 (Version 3)
Quarter: 2025Q2

REPORT INFORMATION
  Report Type: Spontaneous
  Country: CH (occurrence: CH)
  Receive Date: 20250404
  Receipt Date: 20250520
  Transmission Date: 20250716
  Serious: No
  Sender: PFIZER
  Company Number: CH-PFIZER INC-202500068500

PATIENT
  Sex: Female

DRUGS (1)
  1. FRAGMIN [Suspect]
     Active Substance: DALTEPARIN SODIUM

REACTIONS (5)
  - Poor quality device used [Unknown]
  - Liquid product physical issue [Unknown]
  - Product contamination [Unknown]
  - Device delivery system issue [Unknown]
  - Device defective [Unknown]
